FAERS Safety Report 16090976 (Version 3)
Quarter: 2019Q3

REPORT INFORMATION
  Report Type: Spontaneous
  Country: DE (occurrence: DE)
  Receive Date: 20190319
  Receipt Date: 20190716
  Transmission Date: 20191004
  Serious: Yes (Hospitalization)
  Sender: FDA-Public Use
  Company Number: DE-ELI_LILLY_AND_COMPANY-DE201903007265

PATIENT
  Sex: Male

DRUGS (2)
  1. TALTZ [Suspect]
     Active Substance: IXEKIZUMAB
     Indication: PSORIATIC ARTHROPATHY
     Dosage: UNK, UNKNOWN
     Route: 058
     Dates: start: 20181113, end: 20181219
  2. TALTZ [Suspect]
     Active Substance: IXEKIZUMAB
     Indication: PSORIASIS
     Dosage: UNK, UNKNOWN
     Route: 058
     Dates: start: 20170522, end: 20180913

REACTIONS (4)
  - Muscle twitching [Unknown]
  - Pitted keratolysis [Unknown]
  - Psoas abscess [Recovered/Resolved]
  - Skin candida [Unknown]

NARRATIVE: CASE EVENT DATE: 20180809
